FAERS Safety Report 24870669 (Version 1)
Quarter: 2025Q1

REPORT INFORMATION
  Report Type: Spontaneous
  Country: BG (occurrence: BG)
  Receive Date: 20250121
  Receipt Date: 20250121
  Transmission Date: 20250408
  Serious: Yes (Other)
  Sender: RANBAXY
  Company Number: BG-SUN PHARMACEUTICAL INDUSTRIES LTD-2025R1-489253

PATIENT
  Age: 18 Year
  Sex: Female

DRUGS (2)
  1. PREDNISONE [Suspect]
     Active Substance: PREDNISONE
     Indication: Hirsutism
     Route: 065
  2. PREDNISONE [Suspect]
     Active Substance: PREDNISONE
     Dosage: 2.5 MILLIGRAM, DAILY
     Route: 065

REACTIONS (1)
  - Condition aggravated [Unknown]
